FAERS Safety Report 18866952 (Version 2)
Quarter: 2021Q3

REPORT INFORMATION
  Report Type: Spontaneous
  Country: JP (occurrence: JP)
  Receive Date: 20210209
  Receipt Date: 20210720
  Transmission Date: 20211014
  Serious: Yes (Other)
  Sender: FDA-Public Use
  Company Number: JP-JNJFOC-20210214883

PATIENT
  Sex: Male

DRUGS (2)
  1. PREDONINE [Concomitant]
     Active Substance: PREDNISOLONE
     Dosage: DOSE UNKNOWN
     Route: 065
  2. ZYTIGA [Suspect]
     Active Substance: ABIRATERONE ACETATE
     Indication: PRODUCT USED FOR UNKNOWN INDICATION
     Route: 048

REACTIONS (1)
  - COVID-19 [Recovered/Resolved]
